FAERS Safety Report 5256383-6 (Version None)
Quarter: 2007Q1

REPORT INFORMATION
  Report Type: 
  Country: None (occurrence: None)
  Receive Date: 20061204
  Receipt Date: 20060816
  Transmission Date: 20070707
  Serious: No
  Sender: FDA-Public Use
  Company Number: 2006-BP-09572BP

PATIENT
  Sex: Female

DRUGS (6)
  1. SPIRIVA [Suspect]
     Dosage: 18 MCG (18 MCG, 1 IN 1 D), IH
     Route: 055
     Dates: start: 20060802, end: 20060814
  2. NEURONTIN [Concomitant]
  3. TIZANIDINE HCL [Concomitant]
  4. KADIAN [Concomitant]
  5. MORPHINE [Concomitant]
  6. UNIRETIC (PRIMOX PLUS) [Concomitant]

REACTIONS (2)
  - PHARYNGOLARYNGEAL PAIN [None]
  - RASH [None]
